FAERS Safety Report 16434782 (Version 1)
Quarter: 2019Q2

REPORT INFORMATION
  Report Type: Spontaneous
  Country: US (occurrence: US)
  Receive Date: 20190614
  Receipt Date: 20190614
  Transmission Date: 20190711
  Serious: No
  Sender: FDA-Public Use
  Company Number: US-JNJFOC-20170213062

PATIENT
  Sex: Female

DRUGS (6)
  1. DIAZEPAM. [Concomitant]
     Active Substance: DIAZEPAM
     Indication: MUSCLE SPASMS
     Route: 048
     Dates: start: 199411
  2. TOPAMAX [Concomitant]
     Active Substance: TOPIRAMATE
     Indication: MUSCLE SPASMS
     Dosage: ONE IN MORNING AND EVENING
     Route: 048
  3. FENTANYL. [Suspect]
     Active Substance: FENTANYL
     Indication: COMPLEX REGIONAL PAIN SYNDROME
     Dosage: USUALLY ON HIP; INITIATED SO MANY YEARS AGO
     Route: 065
  4. LEVSIN [Concomitant]
     Active Substance: HYOSCYAMINE SULFATE
     Indication: ABDOMINAL RIGIDITY
     Route: 048
     Dates: start: 2000
  5. DOXYCYCLINE. [Concomitant]
     Active Substance: DOXYCYCLINE
     Indication: MUSCLE SPASMS
     Route: 048
     Dates: start: 199411
  6. BACLOFEN. [Concomitant]
     Active Substance: BACLOFEN
     Indication: PROPHYLAXIS
     Route: 048
     Dates: start: 2000

REACTIONS (2)
  - Agitation [Unknown]
  - Therapeutic product effect increased [Unknown]
